FAERS Safety Report 26162428 (Version 1)
Quarter: 2025Q4

REPORT INFORMATION
  Report Type: Report from Study
  Country: CN (occurrence: CN)
  Receive Date: 20251216
  Receipt Date: 20251216
  Transmission Date: 20260117
  Serious: Yes (Other)
  Sender: ROCHE
  Company Number: CN-ROCHE-10000455698

PATIENT

DRUGS (4)
  1. BEVACIZUMAB [Suspect]
     Active Substance: BEVACIZUMAB
     Indication: Cervix cancer metastatic
     Dosage: + 0.9% SODIUM CHLORIDE INJECTION 250 ML
     Route: 041
  2. PACLITAXEL [Suspect]
     Active Substance: PACLITAXEL
     Indication: Cervix cancer metastatic
     Dosage: + 0.9% SODIUM CHLORIDE INJECTION 500 ML, FOR 3 HOURS
     Route: 041
  3. CISPLATIN [Suspect]
     Active Substance: CISPLATIN
     Indication: Cervix cancer metastatic
     Dosage: + SODIUM CHLORIDE INJECTION 500 ML
     Route: 041
  4. CAMRELIZUMAB [Suspect]
     Active Substance: CAMRELIZUMAB
     Indication: Cervix cancer metastatic
     Dosage: + 100 ML SODIUM CHLORIDE INJECTION,
     Route: 042

REACTIONS (11)
  - Reactive capillary endothelial proliferation [Unknown]
  - Hypothyroidism [Unknown]
  - Rash [Unknown]
  - Anaemia [Unknown]
  - White blood cell count decreased [Unknown]
  - Platelet count decreased [Unknown]
  - Gastrointestinal disorder [Unknown]
  - Diarrhoea [Unknown]
  - Asthenia [Unknown]
  - Herpes zoster [Unknown]
  - Transaminases increased [Unknown]
